FAERS Safety Report 24645086 (Version 1)
Quarter: 2024Q4

REPORT INFORMATION
  Report Type: Spontaneous
  Country: BR (occurrence: BR)
  Receive Date: 20241121
  Receipt Date: 20241121
  Transmission Date: 20250115
  Serious: Yes (Hospitalization, Other)
  Sender: ROCHE
  Company Number: BR-ROCHE-10000116182

PATIENT
  Age: 60 Year
  Sex: Male

DRUGS (1)
  1. TARCEVA [Suspect]
     Active Substance: ERLOTINIB HYDROCHLORIDE
     Indication: Head and neck cancer
     Route: 048
     Dates: start: 202308, end: 20241113

REACTIONS (6)
  - Dysphagia [Not Recovered/Not Resolved]
  - Oedema [Unknown]
  - Product administration error [Unknown]
  - Off label use [Unknown]
  - Pharyngeal neoplasm [Not Recovered/Not Resolved]
  - Respiratory disorder [Not Recovered/Not Resolved]

NARRATIVE: CASE EVENT DATE: 20240801
